FAERS Safety Report 13764642 (Version 2)
Quarter: 2017Q4

REPORT INFORMATION
  Report Type: Spontaneous
  Country: US (occurrence: US)
  Receive Date: 20170718
  Receipt Date: 20171116
  Transmission Date: 20180320
  Serious: No
  Sender: FDA-Public Use
  Company Number: US-BAUSCH-BL-2016-014288

PATIENT
  Age: 70 Year
  Sex: Female

DRUGS (2)
  1. XIFAXAN [Suspect]
     Active Substance: RIFAXIMIN
     Indication: IRRITABLE BOWEL SYNDROME
     Route: 048
     Dates: start: 20160927
  2. XIFAXAN [Suspect]
     Active Substance: RIFAXIMIN
     Indication: GASTROINTESTINAL BACTERIAL OVERGROWTH
     Dosage: SOMETIMES TAKES THREE TIMES A DAY AND SOMETIMES TWICE A DAY
     Route: 048
     Dates: end: 201609

REACTIONS (8)
  - Anxiety [Recovered/Resolved]
  - Drug ineffective [Unknown]
  - Irritable bowel syndrome [Unknown]
  - Drug dose omission [Unknown]
  - Dyspnoea [Recovered/Resolved]
  - Gastrointestinal disorder [Unknown]
  - Abdominal distension [Unknown]
  - Diarrhoea [Unknown]

NARRATIVE: CASE EVENT DATE: 201609
